FAERS Safety Report 17730321 (Version 1)
Quarter: 2020Q2

REPORT INFORMATION
  Report Type: Spontaneous
  Country: TW (occurrence: TW)
  Receive Date: 20200430
  Receipt Date: 20200430
  Transmission Date: 20200714
  Serious: Yes (Other)
  Sender: FDA-Public Use
  Company Number: TW-009507513-2004TWN008748

PATIENT
  Age: 19 Year
  Sex: Female

DRUGS (1)
  1. PREVYMIS [Suspect]
     Active Substance: LETERMOVIR

REACTIONS (2)
  - Acute myeloid leukaemia [Recovered/Resolved]
  - Cytomegalovirus infection reactivation [Unknown]
